FAERS Safety Report 14672007 (Version 1)
Quarter: 2018Q1

REPORT INFORMATION
  Report Type: Spontaneous
  Country: US (occurrence: US)
  Receive Date: 20180323
  Receipt Date: 20180323
  Transmission Date: 20180509
  Serious: Yes (Hospitalization, Other)
  Sender: FDA-Public Use
  Company Number: US-ZYDUS-019418

PATIENT
  Age: 67 Year
  Sex: Male

DRUGS (1)
  1. LOSARTAN. [Suspect]
     Active Substance: LOSARTAN
     Indication: HYPERTENSION
     Route: 065

REACTIONS (5)
  - Sprue-like enteropathy [Recovered/Resolved]
  - Lymphocytosis [Recovered/Resolved]
  - Diarrhoea [Recovered/Resolved]
  - Atrophy [Recovered/Resolved]
  - Abnormal loss of weight [Recovered/Resolved]
